FAERS Safety Report 17266416 (Version 1)
Quarter: 2020Q1

REPORT INFORMATION
  Report Type: Report from Study
  Country: CO (occurrence: CO)
  Receive Date: 20200114
  Receipt Date: 20200114
  Transmission Date: 20200409
  Serious: Yes (Life-Threatening, Hospitalization)
  Sender: FDA-Public Use
  Company Number: NVSC2020CO006048

PATIENT
  Sex: Male
  Weight: 82 kg

DRUGS (1)
  1. RYDAPT [Suspect]
     Active Substance: MIDOSTAURIN
     Indication: ACUTE MYELOID LEUKAEMIA
     Dosage: 2 DF, Q12H (50 MG / 2 OF 25MG)
     Route: 048
     Dates: start: 201906

REACTIONS (7)
  - Neutropenia [Unknown]
  - Choking [Unknown]
  - Decreased immune responsiveness [Unknown]
  - Platelet count decreased [Unknown]
  - General physical health deterioration [Unknown]
  - Acute myeloid leukaemia recurrent [Unknown]
  - Depressed mood [Unknown]
